FAERS Safety Report 8402588-2 (Version None)
Quarter: 2012Q2

REPORT INFORMATION
  Report Type: 
  Country: None (occurrence: None)
  Receive Date: 20120601
  Receipt Date: 20120529
  Transmission Date: 20120825
  Serious: Yes (Life-Threatening, Other)
  Sender: FDA-Public Use
  Company Number: US-CELGENEUS-163-C4047-11120537

PATIENT
  Sex: Male
  Weight: 74.8 kg

DRUGS (12)
  1. CC-4047 [Suspect]
     Dosage: 2 MILLIGRAM
     Route: 048
     Dates: start: 20111123, end: 20111214
  2. DEXAMETHASONE [Suspect]
     Indication: MULTIPLE MYELOMA
     Dosage: 40 MILLIGRAM
     Route: 065
     Dates: start: 20100527
  3. REVLIMID [Suspect]
     Dates: start: 20080109, end: 20080129
  4. WARFARIN SODIUM [Concomitant]
     Route: 065
  5. REVLIMID [Suspect]
     Dates: start: 20071212, end: 20080101
  6. HEPARIN [Concomitant]
     Route: 065
  7. ASPIRIN [Concomitant]
     Dosage: 81 MILLIGRAM
     Route: 048
  8. CC-4047 [Suspect]
     Dosage: 2 MILLIGRAM
     Route: 048
     Dates: start: 20111025, end: 20111122
  9. DEXAMETHASONE [Suspect]
     Dosage: 8 MILLIGRAM
     Route: 065
     Dates: start: 20111025
  10. REVLIMID [Suspect]
     Indication: MULTIPLE MYELOMA
     Dosage: 10 MILLIGRAM
     Route: 048
     Dates: start: 20071114, end: 20071204
  11. CC-4047 [Suspect]
     Indication: MULTIPLE MYELOMA
     Dosage: 4 MILLIGRAM
     Route: 048
     Dates: start: 20100527, end: 20100901
  12. COUMADIN [Concomitant]
     Indication: ANTICOAGULANT THERAPY
     Dosage: 10 MILLIGRAM
     Route: 048
     Dates: start: 20100901

REACTIONS (2)
  - PULMONARY EMBOLISM [None]
  - COLON CANCER [None]
